FAERS Safety Report 23700875 (Version 1)
Quarter: 2024Q2

REPORT INFORMATION
  Report Type: Spontaneous
  Country: CL (occurrence: CL)
  Receive Date: 20240403
  Receipt Date: 20240403
  Transmission Date: 20240715
  Serious: Yes (Other)
  Sender: FDA-Public Use
  Company Number: CL-002147023-NVSC2024CL069369

PATIENT
  Age: 46 Year
  Sex: Female

DRUGS (1)
  1. ELTROMBOPAG [Suspect]
     Active Substance: ELTROMBOPAG
     Indication: Immune thrombocytopenia
     Dosage: 50 MG, QD
     Route: 065

REACTIONS (4)
  - Listeria test positive [Unknown]
  - Pyrexia [Unknown]
  - Oral herpes [Unknown]
  - Staphylococcal infection [Unknown]
